FAERS Safety Report 16415246 (Version 2)
Quarter: 2019Q2

REPORT INFORMATION
  Report Type: Spontaneous
  Country: FR (occurrence: FR)
  Receive Date: 20190611
  Receipt Date: 20190619
  Transmission Date: 20190711
  Serious: No
  Sender: FDA-Public Use
  Company Number: FR-PFIZER INC-2019240013

PATIENT
  Age: 39 Year
  Sex: Female

DRUGS (5)
  1. QUETIAPINE. [Interacting]
     Active Substance: QUETIAPINE
     Dosage: 4 G, UNK
  2. ALPRAZOLAM. [Suspect]
     Active Substance: ALPRAZOLAM
     Dosage: 20 MG, UNK
  3. PROPRANOLOL [Interacting]
     Active Substance: PROPRANOLOL HYDROCHLORIDE
     Dosage: 400 MG, UNK
  4. DIVALPROEX SODIUM. [Interacting]
     Active Substance: DIVALPROEX SODIUM
     Dosage: 18.5 G, UNK
  5. DIAZEPAM. [Interacting]
     Active Substance: DIAZEPAM
     Dosage: 100 MG, UNK

REACTIONS (1)
  - Overdose [Unknown]
